FAERS Safety Report 7741674-7 (Version None)
Quarter: 2011Q3

REPORT INFORMATION
  Report Type: 
  Country: None (occurrence: None)
  Receive Date: 20110912
  Receipt Date: 20110907
  Transmission Date: 20111222
  Serious: Yes (Other)
  Sender: FDA-Public Use
  Company Number: NO-SHIRE-ALL1-2011-03240

PATIENT
  Age: 28 Year
  Sex: Male

DRUGS (1)
  1. FIRAZYR [Suspect]
     Indication: HEREDITARY ANGIOEDEMA
     Dosage: 30 MG, ( 1NCE A DAY EVERY 12 HOURS AS REQ'D)
     Route: 058

REACTIONS (2)
  - CHEST PAIN [None]
  - HYPERTENSION [None]
